FAERS Safety Report 5812813-X (Version None)
Quarter: 2008Q3

REPORT INFORMATION
  Report Type: 
  Country: None (occurrence: None)
  Receive Date: 20080717
  Receipt Date: 20080710
  Transmission Date: 20090109
  Serious: No
  Sender: FDA-Public Use
  Company Number: US-BAYER-200827587NA

PATIENT
  Age: 28 Year
  Sex: Female
  Weight: 64 kg

DRUGS (1)
  1. MIRENA [Suspect]
     Indication: CONTRACEPTION
     Route: 015
     Dates: start: 20080616, end: 20080701

REACTIONS (8)
  - APATHY [None]
  - DEPRESSION [None]
  - FEELING ABNORMAL [None]
  - NERVOUSNESS [None]
  - PANIC ATTACK [None]
  - PROCEDURAL PAIN [None]
  - TREMOR [None]
  - UNEVALUABLE EVENT [None]
